FAERS Safety Report 8762504 (Version 1)
Quarter: 2012Q4

REPORT INFORMATION
  Report Type: 
  Country: US (occurrence: US)
  Receive Date: 20120828
  Receipt Date: 20120828
  Transmission Date: 20130627
  Serious: No
  Sender: FDA-Public Use
  Company Number: US-PFIZER INC-2012209873

PATIENT
  Age: 65 Year
  Sex: Female

DRUGS (4)
  1. XANAX [Suspect]
     Dosage: 0.5 mg, 3x/day
     Dates: end: 20120809
  2. VIIBRYD [Suspect]
     Indication: ANXIETY
     Dosage: 20 mg daily
     Route: 048
     Dates: start: 2011, end: 201208
  3. VIIBRYD [Suspect]
     Indication: DEPRESSION
     Dosage: 30 mg daily
     Dates: start: 201208
  4. KLONOPIN [Concomitant]
     Dosage: UNK
     Dates: start: 20120809

REACTIONS (2)
  - Burning sensation [Not Recovered/Not Resolved]
  - Alopecia [Not Recovered/Not Resolved]
